FAERS Safety Report 8772852 (Version 1)
Quarter: 2012Q4

REPORT INFORMATION
  Report Type: 
  Country: US (occurrence: US)
  Receive Date: 20120907
  Receipt Date: 20120907
  Transmission Date: 20130627
  Serious: No
  Sender: FDA-Public Use
  Company Number: US-ASTRAZENECA-2012SE48584

PATIENT
  Age: 56 Year
  Sex: Male

DRUGS (3)
  1. CRESTOR [Suspect]
     Route: 048
  2. CRESTOR [Suspect]
     Route: 048
  3. VIAGRA [Concomitant]

REACTIONS (7)
  - Intentional drug misuse [Unknown]
  - Melanocytic naevus [Unknown]
  - Prostatic specific antigen increased [Unknown]
  - Hyperlipidaemia [Unknown]
  - Erectile dysfunction [Unknown]
  - Fatigue [Unknown]
  - Gastrooesophageal reflux disease [Unknown]
